FAERS Safety Report 5305684-1 (Version None)
Quarter: 2007Q2

REPORT INFORMATION
  Report Type: 
  Country: None (occurrence: None)
  Receive Date: 20070423
  Receipt Date: 20070423
  Transmission Date: 20071010
  Serious: Yes (Hospitalization)
  Sender: FDA-Public Use
  Company Number: None

PATIENT
  Age: 48 Year
  Sex: Male
  Weight: 107.0489 kg

DRUGS (2)
  1. INSULIN ISOPHANE (NPH) [Suspect]
     Dosage: 75 UNITS + 45 UNITS QAM/QPM SC
     Route: 058
  2. REGULAR INSULIN [Suspect]
     Dosage: 8 UNITS BID SC
     Route: 058

REACTIONS (5)
  - ASTHENIA [None]
  - FEELING COLD [None]
  - HYPOGLYCAEMIA [None]
  - OVERDOSE [None]
  - TREMOR [None]
